FAERS Safety Report 23867843 (Version 3)
Quarter: 2024Q2

REPORT INFORMATION
  Report Type: Spontaneous
  Country: CA (occurrence: CA)
  Receive Date: 20240517
  Receipt Date: 20240624
  Transmission Date: 20240716
  Serious: No
  Sender: FDA-Public Use
  Company Number: CA-PFIZER INC-PV202400064293

PATIENT
  Age: 38 Year
  Sex: Female

DRUGS (2)
  1. ADALIMUMAB [Suspect]
     Active Substance: ADALIMUMAB\ISOPROPYL ALCOHOL
     Indication: Hidradenitis
     Dosage: 40 MG, WEEKLY
     Route: 058
     Dates: start: 20240215
  2. ADALIMUMAB [Suspect]
     Active Substance: ADALIMUMAB\ISOPROPYL ALCOHOL
     Dosage: 40 MG, WEEKLY
     Route: 058

REACTIONS (2)
  - Device issue [Unknown]
  - Needle issue [Unknown]
